FAERS Safety Report 4283693-1 (Version None)
Quarter: 2004Q1

REPORT INFORMATION
  Report Type: 
  Country: None (occurrence: None)
  Receive Date: 20040202
  Receipt Date: 20040126
  Transmission Date: 20041129
  Serious: Yes (Disabling)
  Sender: FDA-Public Use
  Company Number: US-ROCHE-357444

PATIENT
  Age: 31 Year
  Sex: Female

DRUGS (5)
  1. KLONOPIN [Suspect]
     Indication: SEDATION
     Route: 048
     Dates: start: 20010115, end: 20020415
  2. KLONOPIN [Suspect]
     Route: 048
     Dates: start: 20030615
  3. BUSPAR [Concomitant]
     Indication: SEDATION
     Route: 048
     Dates: start: 20030615
  4. WELLBUTRIN [Concomitant]
     Route: 048
     Dates: start: 20030615
  5. EFFEXOR [Concomitant]
     Route: 048
     Dates: start: 20010615

REACTIONS (4)
  - ANGIONEUROTIC OEDEMA [None]
  - BLINDNESS [None]
  - CATARACT [None]
  - RETINAL DETACHMENT [None]
